FAERS Safety Report 15014688 (Version 1)
Quarter: 2018Q2

REPORT INFORMATION
  Report Type: Spontaneous
  Country: US (occurrence: US)
  Receive Date: 20180615
  Receipt Date: 20180615
  Transmission Date: 20180711
  Serious: No
  Sender: FDA-Public Use
  Company Number: US-HORIZON-VIM-0966-2018

PATIENT
  Age: 48 Year
  Sex: Male

DRUGS (3)
  1. VIMOVO [Suspect]
     Active Substance: ESOMEPRAZOLE MAGNESIUM\NAPROXEN
     Indication: PAIN IN EXTREMITY
     Dates: start: 201804, end: 201804
  2. METOPROLOL. [Concomitant]
     Active Substance: METOPROLOL
  3. PROPAFENONE. [Concomitant]
     Active Substance: PROPAFENONE

REACTIONS (2)
  - Joint swelling [Recovered/Resolved]
  - Peripheral swelling [Recovered/Resolved]
